FAERS Safety Report 11704231 (Version 1)
Quarter: 2015Q4

REPORT INFORMATION
  Report Type: Spontaneous
  Country: CZ (occurrence: CZ)
  Receive Date: 20151106
  Receipt Date: 20151106
  Transmission Date: 20160304
  Serious: Yes (Life-Threatening)
  Sender: FDA-Public Use
  Company Number: CZ-ACTAVIS-2015-23291

PATIENT
  Age: 46 Year
  Sex: Female

DRUGS (3)
  1. LEVOSERT [Suspect]
     Active Substance: LEVONORGESTREL
     Indication: CHEMICAL CONTRACEPTION
     Dosage: 20 MCG, DAILY
     Route: 015
     Dates: start: 20150729, end: 20151020
  2. NORETHISTERONE ACETATE [Suspect]
     Active Substance: NORETHINDRONE ACETATE
     Dosage: TWICE A DAY
     Route: 065
     Dates: start: 20151007
  3. NORETHISTERONE ACETATE [Suspect]
     Active Substance: NORETHINDRONE ACETATE
     Indication: MENORRHAGIA
     Dosage: TWICE A DAY
     Route: 065
     Dates: start: 20150909

REACTIONS (3)
  - Venous thrombosis limb [Unknown]
  - Inflammation [Unknown]
  - Haemorrhage [Unknown]

NARRATIVE: CASE EVENT DATE: 20151019
